FAERS Safety Report 21795551 (Version 1)
Quarter: 2022Q4

REPORT INFORMATION
  Report Type: Spontaneous
  Country: US (occurrence: None)
  Receive Date: 20221228
  Receipt Date: 20221228
  Transmission Date: 20230113
  Serious: No
  Sender: FDA-Public Use
  Company Number: None

PATIENT
  Sex: Female
  Weight: 82.1 kg

DRUGS (12)
  1. IBRANCE [Suspect]
     Active Substance: PALBOCICLIB
     Indication: Breast cancer female
     Dosage: FREQUENCY : DAILY;?
     Route: 048
  2. ASPIRIN [Concomitant]
  3. FULVESTRANT [Concomitant]
  4. GABAPENTIN [Concomitant]
  5. GLIMEPIRIDE [Concomitant]
  6. MELATONIN [Concomitant]
     Active Substance: MELATONIN
  7. METFORMIN [Concomitant]
     Active Substance: METFORMIN HYDROCHLORIDE
  8. METOPROLOL [Concomitant]
     Active Substance: METOPROLOL
  9. OMEPRAZOLE [Concomitant]
  10. VERAPAMIL [Concomitant]
  11. VITAMIN B COMPLEX AND ASCORBIC ACID [Concomitant]
  12. VITAMIN D3 [Concomitant]

REACTIONS (1)
  - Bacteraemia [None]
